FAERS Safety Report 17261652 (Version 1)
Quarter: 2020Q1

REPORT INFORMATION
  Report Type: Spontaneous
  Country: US (occurrence: US)
  Receive Date: 20200113
  Receipt Date: 20200113
  Transmission Date: 20200409
  Serious: No
  Sender: FDA-Public Use
  Company Number: US-TEVA-2020-US-1167168

PATIENT
  Sex: Male

DRUGS (1)
  1. METOPROLOL SUCCINATE EXTENDED-RELEASE TABLETS [Suspect]
     Active Substance: METOPROLOL SUCCINATE
     Indication: CARDIAC FIBRILLATION
     Dosage: DOSAGE: ONCE DAILY IN THE MORNING
     Route: 065
     Dates: start: 20191115

REACTIONS (4)
  - Dizziness [Unknown]
  - Fatigue [Unknown]
  - Product prescribing error [Unknown]
  - Product use in unapproved indication [Unknown]

NARRATIVE: CASE EVENT DATE: 20191230
